FAERS Safety Report 20823737 (Version 24)
Quarter: 2025Q2

REPORT INFORMATION
  Report Type: Report from Study
  Country: JP (occurrence: JP)
  Receive Date: 20220513
  Receipt Date: 20250525
  Transmission Date: 20250717
  Serious: Yes (Hospitalization, Other)
  Sender: TAKEDA
  Company Number: JP-TAKEDA-2021TJP124867

PATIENT
  Age: 54 Year
  Sex: Male

DRUGS (22)
  1. TEDUGLUTIDE [Suspect]
     Active Substance: TEDUGLUTIDE
     Indication: Short-bowel syndrome
     Dosage: 0.025 MILLIGRAM/KILOGRAM, QD
     Dates: start: 20211110
  2. TEDUGLUTIDE [Suspect]
     Active Substance: TEDUGLUTIDE
     Dosage: 0.05 MILLIGRAM/KILOGRAM, QOD
     Dates: start: 20220628
  3. TEDUGLUTIDE [Suspect]
     Active Substance: TEDUGLUTIDE
     Dosage: 0.05 MILLIGRAM/KILOGRAM, QD
     Dates: start: 20230110, end: 20240620
  4. TEDUGLUTIDE [Suspect]
     Active Substance: TEDUGLUTIDE
  5. LOPERAMIDE HYDROCHLORIDE [Concomitant]
     Active Substance: LOPERAMIDE HYDROCHLORIDE
     Indication: Short-bowel syndrome
     Dosage: 2 DOSAGE FORM, QID
  6. LOPERAMIDE HYDROCHLORIDE [Concomitant]
     Active Substance: LOPERAMIDE HYDROCHLORIDE
     Indication: Diarrhoea
  7. MIYA-BM [Concomitant]
     Active Substance: CLOSTRIDIUM BUTYRICUM SPORES STRAIN M-55
     Indication: Short-bowel syndrome
     Dosage: 1 GRAM, TID
  8. MIYA-BM [Concomitant]
     Active Substance: CLOSTRIDIUM BUTYRICUM SPORES STRAIN M-55
     Indication: Diarrhoea
  9. PANCRELIPASE [Concomitant]
     Active Substance: PANCRELIPASE
     Indication: Short-bowel syndrome
  10. AMINO ACIDS\CARBOHYDRATES\MINERALS\SOYBEAN OIL\VITAMINS [Concomitant]
     Active Substance: AMINO ACIDS\CARBOHYDRATES\MINERALS\SOYBEAN OIL\VITAMINS
     Indication: Short-bowel syndrome
  11. AMINO ACIDS\DEXTROSE\ELECTROLYTES NOS [Concomitant]
     Active Substance: AMINO ACIDS\DEXTROSE\ELECTROLYTES NOS
     Indication: Short-bowel syndrome
  12. LANSOPRAZOLE [Concomitant]
     Active Substance: LANSOPRAZOLE
     Indication: Short-bowel syndrome
     Dosage: 15 MILLIGRAM, QD
  13. LANSOPRAZOLE [Concomitant]
     Active Substance: LANSOPRAZOLE
     Indication: Gastritis
  14. CODEINE PHOSPHATE [Concomitant]
     Active Substance: CODEINE PHOSPHATE
     Indication: Short-bowel syndrome
     Dosage: 1 DOSAGE FORM, QID
  15. CODEINE PHOSPHATE [Concomitant]
     Active Substance: CODEINE PHOSPHATE
     Indication: Diarrhoea
  16. ELIQUIS [Concomitant]
     Active Substance: APIXABAN
     Indication: Thrombosis
     Dosage: 1 DOSAGE FORM, BID
  17. MEROPENEM [Concomitant]
     Active Substance: MEROPENEM
  18. VFEND [Concomitant]
     Active Substance: VORICONAZOLE
     Indication: Systemic mycosis
     Dosage: 3 DOSAGE FORM, BID
  19. ULINASTATIN [Concomitant]
     Active Substance: ULINASTATIN
  20. NITROFURANTOIN [Concomitant]
     Active Substance: NITROFURANTOIN
     Indication: Short-bowel syndrome
  21. BIO-THREE [Concomitant]
     Active Substance: HERBALS
     Indication: Short-bowel syndrome
  22. CALCIUM ASPARTATE [Concomitant]
     Active Substance: CALCIUM ASPARTATE

REACTIONS (15)
  - Sepsis [Recovered/Resolved]
  - Vascular device infection [Recovering/Resolving]
  - Jugular vein thrombosis [Recovering/Resolving]
  - Renal impairment [Recovering/Resolving]
  - Catheter site infection [Recovering/Resolving]
  - Dehydration [Recovering/Resolving]
  - Dehydration [Recovering/Resolving]
  - Dehydration [Recovering/Resolving]
  - Sepsis [Recovered/Resolved]
  - Cholecystitis [Recovered/Resolved]
  - Stoma complication [Recovering/Resolving]
  - Subcutaneous abscess [Recovering/Resolving]
  - Subcutaneous abscess [Recovering/Resolving]
  - Hepatic function abnormal [Recovered/Resolved]
  - Inappropriate schedule of product administration [Recovering/Resolving]

NARRATIVE: CASE EVENT DATE: 20211129
